FAERS Safety Report 24701617 (Version 1)
Quarter: 2024Q4

REPORT INFORMATION
  Report Type: Spontaneous
  Country: US (occurrence: None)
  Receive Date: 20241204
  Receipt Date: 20241204
  Transmission Date: 20250115
  Serious: No
  Sender: Public
  Company Number: None

PATIENT
  Age: 74 Year
  Sex: Male
  Weight: 90 kg

DRUGS (16)
  1. DEVICE [Suspect]
     Active Substance: DEVICE
  2. SELEGILINE [Concomitant]
     Active Substance: SELEGILINE
  3. CLONAZEPAM [Concomitant]
     Active Substance: CLONAZEPAM
  4. LAMOTRIGINE [Concomitant]
     Active Substance: LAMOTRIGINE
  5. SIMVASTATIN [Concomitant]
     Active Substance: SIMVASTATIN
  6. SYNTHROID [Concomitant]
     Active Substance: LEVOTHYROXINE SODIUM
  7. SILODOSIN [Concomitant]
     Active Substance: SILODOSIN
  8. OMEPRAZOLE [Concomitant]
     Active Substance: OMEPRAZOLE
  9. Fleccanide [Concomitant]
  10. FISH OIL [Concomitant]
     Active Substance: FISH OIL
  11. VITAMINS [Concomitant]
     Active Substance: VITAMINS
  12. FOLIC ACID [Concomitant]
     Active Substance: FOLIC ACID
  13. VITAMIN B12 [Concomitant]
     Active Substance: CYANOCOBALAMIN
  14. MAGNESIUM [Concomitant]
     Active Substance: MAGNESIUM
  15. SELENIUM [Concomitant]
     Active Substance: SELENIUM
  16. HUMAN IMMUNOGLOBULIN G [Suspect]
     Active Substance: HUMAN IMMUNOGLOBULIN G

REACTIONS (2)
  - Infusion site rash [None]
  - Device leakage [None]

NARRATIVE: CASE EVENT DATE: 20241120
